FAERS Safety Report 8815337 (Version 1)
Quarter: 2012Q4

REPORT INFORMATION
  Report Type: 
  Country: US (occurrence: US)
  Receive Date: 20120928
  Receipt Date: 20120928
  Transmission Date: 20130627
  Serious: Yes (Other)
  Sender: FDA-Public Use
  Company Number: US-ASTRAZENECA-2012SE72976

PATIENT
  Age: 84 Year
  Sex: Female
  Weight: 68.9 kg

DRUGS (13)
  1. OMEPRAZOLE [Suspect]
     Route: 048
  2. SPIRONOLACTONE AND HYDROCHLOROTHIAZIDE [Interacting]
     Indication: JOINT SWELLING
     Dosage: 25/25 TABLET DAILY
     Route: 048
     Dates: start: 2012
  3. OMEGA-3 [Interacting]
     Route: 065
  4. SUPER B COMPLEX [Interacting]
     Route: 065
  5. BIOTIN [Interacting]
     Route: 065
  6. COLACE [Interacting]
     Dosage: 100 MG, TWO IN ONE DAY
     Route: 065
  7. METOPROLOL [Interacting]
     Indication: HYPERTENSION
     Route: 065
  8. PRAVASTATIN SODIUM [Interacting]
     Indication: BLOOD CHOLESTEROL INCREASED
     Route: 065
  9. BAYER ASPIRIN [Interacting]
     Route: 065
  10. UNSPECIFIED INGREDIENT [Interacting]
     Dosage: 1 DF, TWO IN ONE DAY
     Route: 065
  11. METAMUCIL [Interacting]
     Route: 065
  12. CALTRATE [Interacting]
     Dosage: 600 D, SOFT CHEWS, 2 DF, DAILY
     Route: 065
  13. CENTRUM SILVER [Interacting]
     Route: 065

REACTIONS (2)
  - Drug interaction [Unknown]
  - Loss of consciousness [Unknown]
